FAERS Safety Report 21228444 (Version 4)
Quarter: 2022Q4

REPORT INFORMATION
  Report Type: Spontaneous
  Country: US (occurrence: US)
  Receive Date: 20220818
  Receipt Date: 20221013
  Transmission Date: 20230113
  Serious: No
  Sender: FDA-Public Use
  Company Number: US-PFIZER INC-202201041177

PATIENT
  Age: 59 Year
  Sex: Male
  Weight: 136.08 kg

DRUGS (12)
  1. GENOTROPIN [Suspect]
     Active Substance: SOMATROPIN
     Dosage: 0.6 MG, 1X/DAY (ONCE IN THE MORNING)
     Dates: start: 20200107
  2. METFORMIN [Concomitant]
     Active Substance: METFORMIN HYDROCHLORIDE
     Indication: Diabetes mellitus
     Dosage: 500MG UP TO 1000MG IN THE MORNING + 1000 MG IN THE EVENING DEPENDING ON HIS SUGAR LEVEL, AS NEEDED
  3. HYDROCORTISONE [Concomitant]
     Active Substance: HYDROCORTISONE
     Dosage: 60 MG, DAILY (3 TABLETS FOR 15 MG IN THE MORNING AND IN THE AFTERNOON 15 MG)
  4. DESMOPRESSIN [Concomitant]
     Active Substance: DESMOPRESSIN
     Indication: Adrenal disorder
     Dosage: 0.1 MG, 2X/DAY (0.1 MG 1 TABLETS IN THE MORNING WITH BREAKFAST AND 1 TABLET IN THE EVENING HOURS)
  5. LEXOPIL [Concomitant]
     Indication: Visual impairment
     Dosage: 10 MG, 1X/DAY
  6. FENOFIBRATE [Concomitant]
     Active Substance: FENOFIBRATE
     Indication: Blood cholesterol abnormal
     Dosage: 200 MG
  7. LOSARTAN POTASSIUM [Concomitant]
     Active Substance: LOSARTAN POTASSIUM
     Indication: Hypertension
     Dosage: 50 MG, 1X/DAY
  8. OZEMPIC [Concomitant]
     Active Substance: SEMAGLUTIDE
     Indication: Diabetes mellitus
     Dosage: UNK, WEEKLY (EVERY THURSDAY ONCE A WEEK)
  9. OZEMPIC [Concomitant]
     Active Substance: SEMAGLUTIDE
     Indication: Blood glucose abnormal
  10. TESTOSTERONE [Concomitant]
     Active Substance: TESTOSTERONE
     Indication: Androgen deficiency
     Dosage: UNK, WEEKLY (ONCE A WEEK)
  11. VITAMIN C [Concomitant]
     Active Substance: ASCORBIC ACID
     Dosage: UNK
  12. DIETARY SUPPLEMENT\HERBALS\MILK THISTLE [Concomitant]
     Active Substance: DIETARY SUPPLEMENT\HERBALS\MILK THISTLE
     Indication: Hepatic steatosis
     Dosage: UNK

REACTIONS (5)
  - Device information output issue [Unknown]
  - Device power source issue [Unknown]
  - Device issue [Unknown]
  - Wrong technique in device usage process [Unknown]
  - Drug dose omission by device [Unknown]
